FAERS Safety Report 5838202-X (Version None)
Quarter: 2008Q3

REPORT INFORMATION
  Report Type: 
  Country: None (occurrence: None)
  Receive Date: 20080808
  Receipt Date: 20080801
  Transmission Date: 20090109
  Serious: Yes (Life-Threatening, Hospitalization)
  Sender: FDA-Public Use
  Company Number: US-NOVOPROD-277475

PATIENT
  Sex: Male
  Weight: 70.5 kg

DRUGS (15)
  1. NORDITROPIN NORDIFLEX [Suspect]
     Indication: HAEMODIALYSIS
     Dosage: 1.4 MG, QD
     Route: 058
     Dates: start: 20080624, end: 20080716
  2. NORDITROPIN NORDIFLEX [Suspect]
     Dosage: 1.4 MG, QD
     Route: 058
     Dates: start: 20080721, end: 20080729
  3. ASPIRIN [Concomitant]
     Indication: PROPHYLAXIS
     Dosage: 81 MG, QD
     Route: 048
     Dates: start: 20050830
  4. EPOGEN [Concomitant]
     Indication: NEPHROGENIC ANAEMIA
     Dosage: 1500 IU, BIW
     Route: 042
     Dates: start: 19400101
  5. VENOFER [Concomitant]
     Indication: NEPHROGENIC ANAEMIA
     Dosage: 100 MG, THREE TIMES PER WEEK
     Route: 042
     Dates: start: 20080324
  6. SINGULAIR [Concomitant]
     Dosage: 10 MG, QD
     Route: 048
  7. BENICAR [Concomitant]
     Dosage: 40 MG, QD
     Route: 048
  8. PHOSLO [Concomitant]
     Dosage: 2 TABLETS WITH EACH MEAL
     Route: 048
  9. RENAGEL                            /01459901/ [Concomitant]
     Dosage: WITH EACH MEAL
  10. NEPHRO-VITE                        /01719801/ [Concomitant]
     Dosage: 1 TABLET DAILY
     Route: 048
  11. LOVASTATIN [Concomitant]
     Dosage: 20 MG, QD
     Route: 048
  12. NORVASC [Concomitant]
     Dosage: 5 MG, QD
     Route: 048
  13. SENSIPAR [Concomitant]
     Dosage: 30 MG, QD
     Route: 048
  14. PROCRIT [Concomitant]
  15. ADVIL [Concomitant]

REACTIONS (1)
  - GASTROINTESTINAL HAEMORRHAGE [None]
